FAERS Safety Report 10250774 (Version 2)
Quarter: 2014Q2

REPORT INFORMATION
  Report Type: Other
  Country: US (occurrence: US)
  Receive Date: 20140620
  Receipt Date: 20140620
  Transmission Date: 20141212
  Serious: Yes (Hospitalization, Other)
  Sender: FDA-Public Use
  Company Number: US-GSKPPD-2014GSK000276

PATIENT
  Age: 47 Year
  Sex: 0
  Weight: 87.62 kg

DRUGS (1)
  1. AVANDIA [Suspect]
     Indication: DIABETES MELLITUS
     Route: 048
     Dates: start: 2001, end: 2003

REACTIONS (2)
  - Cardiac failure congestive [None]
  - Acute myocardial infarction [Recovered/Resolved]
